FAERS Safety Report 16182955 (Version 1)
Quarter: 2020Q3

REPORT INFORMATION
  Report Type: Report from Study
  Country: US (occurrence: US)
  Receive Date: 20190411
  Receipt Date: 20190411
  Transmission Date: 20201104
  Serious: Yes (Death)
  Sender: FDA-Public Use
  Company Number: US-ROCHE-2285894

PATIENT
  Age: 62 Year
  Sex: Male
  Weight: 68.1 kg

DRUGS (6)
  1. KEPPRA [Concomitant]
     Active Substance: LEVETIRACETAM
     Dosage: ONGOING; UNKNOWN
     Route: 048
     Dates: start: 20180206
  2. ALECTINIB. [Suspect]
     Active Substance: ALECTINIB
     Indication: LUNG NEOPLASM MALIGNANT
     Dosage: 4 CAPSULES BY MOUTH
     Route: 048
     Dates: start: 20180206
  3. MORPHINE SULPHATE [Concomitant]
     Active Substance: MORPHINE SULFATE
     Route: 048
     Dates: start: 20180927
  4. SENOKOT [Concomitant]
     Active Substance: SENNOSIDES
     Dosage: ONGOING; UNKNOWN
     Route: 048
     Dates: start: 20180206
  5. HYDROMORPHONE [Concomitant]
     Active Substance: HYDROMORPHONE
     Dosage: ONGOING; UNKNOWN
     Route: 048
     Dates: start: 20180308
  6. OXYCODONE HYDROCHLORIDE. [Concomitant]
     Active Substance: OXYCODONE HYDROCHLORIDE
     Route: 048
     Dates: start: 20180206, end: 20180308

REACTIONS (1)
  - Death [Fatal]

NARRATIVE: CASE EVENT DATE: 20190317
